FAERS Safety Report 13568810 (Version 4)
Quarter: 2017Q3

REPORT INFORMATION
  Report Type: Report from Study
  Country: JP (occurrence: JP)
  Receive Date: 20170522
  Receipt Date: 20170711
  Transmission Date: 20171127
  Serious: Yes (Hospitalization)
  Sender: FDA-Public Use
  Company Number: JP-PFIZER INC-2017224074

PATIENT
  Age: 64 Year
  Sex: Male

DRUGS (16)
  1. TRERIEF [Concomitant]
     Active Substance: ZONISAMIDE
     Dosage: UNK
  2. MENESIT [Concomitant]
     Active Substance: CARBIDOPA\LEVODOPA
     Dosage: UNK
  3. SEROQUEL [Concomitant]
     Active Substance: QUETIAPINE FUMARATE
     Dosage: UNK
  4. LIPITOR [Concomitant]
     Active Substance: ATORVASTATIN CALCIUM
     Dosage: UNK
  5. BETANIS [Concomitant]
     Active Substance: MIRABEGRON
     Dosage: UNK
  6. PANALDINE [Concomitant]
     Active Substance: TICLOPIDINE HYDROCHLORIDE
     Dosage: UNK
  7. TENORMIN [Concomitant]
     Active Substance: ATENOLOL
     Dosage: UNK
  8. AMITIZA [Concomitant]
     Active Substance: LUBIPROSTONE
     Dosage: UNK
  9. BAYASPIRIN [Concomitant]
     Active Substance: ASPIRIN
     Dosage: UNK
  10. KARY UNI [Concomitant]
     Active Substance: PIRENOXINE
     Dosage: UNK
  11. NORVASC [Suspect]
     Active Substance: AMLODIPINE BESYLATE
     Indication: HYPERTENSION
     Dosage: 2.5 MG, DAILY
     Route: 048
  12. EXELON [Concomitant]
     Active Substance: RIVASTIGMINE TARTRATE
     Dosage: UNK
  13. TAKEPRON [Concomitant]
     Active Substance: LANSOPRAZOLE
     Dosage: UNK
  14. HYALEIN [Concomitant]
     Active Substance: HYALURONATE SODIUM
     Dosage: UNK
  15. OFLOXACIN. [Concomitant]
     Active Substance: OFLOXACIN
     Dosage: UNK
  16. LANDSEN [Concomitant]
     Active Substance: CLONAZEPAM
     Dosage: UNK

REACTIONS (1)
  - Microscopic polyangiitis [Recovering/Resolving]

NARRATIVE: CASE EVENT DATE: 20170501
